FAERS Safety Report 7130440-1 (Version None)
Quarter: 2010Q4

REPORT INFORMATION
  Report Type: 
  Country: None (occurrence: None)
  Receive Date: 20101201
  Receipt Date: 20101116
  Transmission Date: 20110411
  Serious: Yes (Hospitalization)
  Sender: FDA-Public Use
  Company Number: US-SANOFI-AVENTIS-2010SA071481

PATIENT
  Age: 45 Year
  Sex: Female

DRUGS (26)
  1. DEPAKOTE [Suspect]
     Route: 065
  2. ZOLPIDEM [Suspect]
     Route: 065
  3. ZIPRASIDONE MESILATE [Suspect]
     Route: 030
  4. SYNTHROID [Suspect]
     Route: 065
  5. GEODON [Suspect]
     Dosage: DOSE STOPPED IN JULYL (YEAR NOT PROVIDED)
     Route: 065
  6. GEODON [Suspect]
     Route: 065
  7. ALPRAZOLAM [Suspect]
     Route: 065
  8. NITROGLYCERIN [Suspect]
     Route: 065
  9. LORAZEPAM [Suspect]
     Route: 065
  10. LOPERAMIDE HYDROCHLORIDE [Suspect]
     Route: 065
  11. ISOSORBIDE MONONITRATE [Suspect]
     Route: 065
  12. CALCIUM CARBONATE [Suspect]
     Route: 065
  13. ACETYL SALICYLIC ACID USP BAT [Suspect]
     Route: 065
  14. DILTIAZEM HYDROCHLORIDE [Suspect]
     Route: 065
  15. NICOTINE [Suspect]
     Route: 065
  16. SPIRIVA [Suspect]
     Route: 065
  17. TOPAMAX [Suspect]
     Route: 065
  18. ABILIFY [Suspect]
     Route: 065
  19. ACETAMINOPHEN [Suspect]
     Route: 065
  20. DIPHENHYDRAMINE HYDROCHLORIDE [Suspect]
     Route: 065
  21. BACTRIM [Suspect]
     Route: 065
  22. MAGNESIUM HYDROXIDE [Suspect]
     Route: 065
  23. LAMOTRIGINE [Suspect]
     Route: 065
  24. OMEPRAZOLE [Suspect]
     Route: 065
  25. HALDOL [Suspect]
     Route: 065
  26. FISH OIL [Suspect]
     Route: 065

REACTIONS (2)
  - COMA [None]
  - MENTAL DISORDER [None]
